FAERS Safety Report 18028895 (Version 2)
Quarter: 2021Q1

REPORT INFORMATION
  Report Type: Spontaneous
  Country: US (occurrence: US)
  Receive Date: 20200715
  Receipt Date: 20210208
  Transmission Date: 20210419
  Serious: No
  Sender: FDA-Public Use
  Company Number: NVSC2020US196506

PATIENT
  Sex: Female

DRUGS (1)
  1. COSENTYX [Suspect]
     Active Substance: SECUKINUMAB
     Indication: PRODUCT USED FOR UNKNOWN INDICATION
     Dosage: 150 MICROGRAM PER MILLIGRAM
     Route: 065

REACTIONS (4)
  - Medical device site bruise [Unknown]
  - Product dose omission issue [Unknown]
  - Device defective [Unknown]
  - Device mechanical issue [Unknown]
